FAERS Safety Report 6792618-6 (Version None)
Quarter: 2010Q2

REPORT INFORMATION
  Report Type: 
  Country: None (occurrence: None)
  Receive Date: 20100624
  Receipt Date: 20080827
  Transmission Date: 20101027
  Serious: No
  Sender: FDA-Public Use
  Company Number: US-PFIZER INC-2008071413

PATIENT

DRUGS (2)
  1. GEODON [Suspect]
  2. STRATTERA [Suspect]

REACTIONS (1)
  - NAUSEA [None]
